FAERS Safety Report 20844228 (Version 2)
Quarter: 2022Q3

REPORT INFORMATION
  Report Type: Spontaneous
  Country: US (occurrence: US)
  Receive Date: 20220518
  Receipt Date: 20220707
  Transmission Date: 20221027
  Serious: No
  Sender: FDA-Public Use
  Company Number: US-PFIZER INC-202200715859

PATIENT
  Age: 68 Year
  Sex: Female

DRUGS (1)
  1. IBRANCE [Suspect]
     Active Substance: PALBOCICLIB
     Indication: Gastric cancer stage IV
     Dosage: UNK

REACTIONS (4)
  - Off label use [Unknown]
  - Sluggishness [Unknown]
  - Feeling abnormal [Unknown]
  - Alopecia [Unknown]
